FAERS Safety Report 6487397-6 (Version None)
Quarter: 2009Q4

REPORT INFORMATION
  Report Type: 
  Country: None (occurrence: None)
  Receive Date: 20091210
  Receipt Date: 20091208
  Transmission Date: 20100525
  Serious: Yes (Hospitalization)
  Sender: FDA-Public Use
  Company Number: US-ROXANE LABORATORIES, INC.-2009-RO-01241RO

PATIENT
  Sex: Female

DRUGS (7)
  1. PREDNISONE [Suspect]
     Indication: RENAL TRANSPLANT
     Dates: start: 20060504
  2. CYCLOSPORINE [Suspect]
     Indication: RENAL TRANSPLANT
     Dosage: 300 MG
     Route: 048
     Dates: start: 20060503
  3. CELLCEPT [Suspect]
     Indication: RENAL TRANSPLANT
     Dates: start: 20060502
  4. PROCARDIA [Concomitant]
     Dates: start: 20071115
  5. DOCUSATE SODIUM [Concomitant]
     Dates: start: 20060507
  6. ATORVASTATIN CALCIUM [Concomitant]
     Dates: start: 20081023
  7. TYLENOL (CAPLET) [Concomitant]
     Dates: start: 20081203

REACTIONS (2)
  - ESCHERICHIA INFECTION [None]
  - UROSEPSIS [None]
